FAERS Safety Report 22893598 (Version 5)
Quarter: 2024Q1

REPORT INFORMATION
  Report Type: Report from Study
  Country: JP (occurrence: JP)
  Receive Date: 20230901
  Receipt Date: 20240125
  Transmission Date: 20240409
  Serious: Yes (Hospitalization, Other)
  Sender: FDA-Public Use
  Company Number: JP-ASTELLAS-2023JP004758

PATIENT
  Age: 74 Year
  Sex: Male
  Weight: 56 kg

DRUGS (6)
  1. ENFORTUMAB VEDOTIN [Suspect]
     Active Substance: ENFORTUMAB VEDOTIN
     Indication: Transitional cell carcinoma
     Route: 041
     Dates: start: 20220323, end: 20220406
  2. ENFORTUMAB VEDOTIN [Suspect]
     Active Substance: ENFORTUMAB VEDOTIN
     Dosage: 0.96 MG/KG, UNKNOWN FREQ.
     Route: 041
     Dates: start: 20220422, end: 20220422
  3. ENFORTUMAB VEDOTIN [Suspect]
     Active Substance: ENFORTUMAB VEDOTIN
     Route: 041
     Dates: start: 20220506, end: 20220506
  4. ENFORTUMAB VEDOTIN [Suspect]
     Active Substance: ENFORTUMAB VEDOTIN
     Dosage: 0.96 MG/KG, UNKNOWN FREQ.
     Route: 041
     Dates: start: 20220523, end: 20220704
  5. WARFARIN [Suspect]
     Active Substance: WARFARIN
     Indication: Prophylaxis
     Route: 048
     Dates: start: 2009, end: 20220421
  6. WARFARIN [Suspect]
     Active Substance: WARFARIN
     Route: 048
     Dates: start: 20220502

REACTIONS (4)
  - Mallory-Weiss syndrome [Not Recovered/Not Resolved]
  - Gastrointestinal haemorrhage [Recovered/Resolved]
  - Weight increased [Recovered/Resolved]
  - Vomiting [Recovered/Resolved]

NARRATIVE: CASE EVENT DATE: 20220420
